FAERS Safety Report 23510723 (Version 1)
Quarter: 2024Q1

REPORT INFORMATION
  Report Type: Spontaneous
  Country: US (occurrence: US)
  Receive Date: 20240211
  Receipt Date: 20240211
  Transmission Date: 20240410
  Serious: Yes (Death)
  Sender: FDA-Public Use
  Company Number: US-COHERUS BIOSCIENCES, Inc.-2024-COH-US000066

PATIENT

DRUGS (1)
  1. UDENYCA [Suspect]
     Active Substance: PEGFILGRASTIM-CBQV
     Indication: Neutropenia
     Dosage: 6MG / 0.6 ML GIVEN 24 HOURS AFTER CHEMO
     Route: 058
     Dates: start: 20220707

REACTIONS (2)
  - Pancreatic carcinoma [Fatal]
  - Sepsis [Fatal]
